FAERS Safety Report 15839078 (Version 4)
Quarter: 2019Q3

REPORT INFORMATION
  Report Type: Spontaneous
  Country: US (occurrence: US)
  Receive Date: 20190117
  Receipt Date: 20190821
  Transmission Date: 20191004
  Serious: No
  Sender: FDA-Public Use
  Company Number: US-PFIZER INC-2018504655

PATIENT
  Age: 53 Year
  Sex: Female

DRUGS (2)
  1. RELPAX [Suspect]
     Active Substance: ELETRIPTAN HYDROBROMIDE
     Indication: MIGRAINE
     Dosage: 40 MG 1 ONSET HA AND 1 2 HOURS AFTER HEADACHE WAS NOT CLEARED MAX 2 TABS PER DAY
     Route: 048
  2. RELPAX [Suspect]
     Active Substance: ELETRIPTAN HYDROBROMIDE
     Indication: HEADACHE
     Dosage: 20 MG, 2X/DAY(TAKE 1 TABLET BY MOUTH AT ONSET OF HEADACHE, AND 1 TABLET 2 HOURS LATER )
     Route: 048

REACTIONS (1)
  - Drug ineffective [Unknown]
